FAERS Safety Report 4295070-8 (Version None)
Quarter: 2004Q1

REPORT INFORMATION
  Report Type: 
  Country: None (occurrence: None)
  Receive Date: 20040211
  Receipt Date: 20040129
  Transmission Date: 20041129
  Serious: Yes (Other)
  Sender: FDA-Public Use
  Company Number: NSADSS2003017337

PATIENT
  Age: 56 Year
  Sex: Female
  Weight: 66.2252 kg

DRUGS (20)
  1. REMICADE [Suspect]
     Indication: RHEUMATOID ARTHRITIS
     Dosage: 200 MG , 1 IN 1 AS NECESSARY, INTRAVENOUS DRIP
     Route: 041
     Dates: start: 20000527, end: 20000527
  2. REMICADE [Suspect]
     Indication: RHEUMATOID ARTHRITIS
     Dosage: 200 MG , 1 IN 1 AS NECESSARY, INTRAVENOUS DRIP
     Route: 041
     Dates: start: 20000612, end: 20000612
  3. REMICADE [Suspect]
     Indication: RHEUMATOID ARTHRITIS
     Dosage: 200 MG , 1 IN 1 AS NECESSARY, INTRAVENOUS DRIP
     Route: 041
     Dates: start: 20000725, end: 20000725
  4. REMICADE [Suspect]
     Indication: RHEUMATOID ARTHRITIS
     Dosage: 200 MG , 1 IN 1 AS NECESSARY, INTRAVENOUS DRIP
     Route: 041
     Dates: start: 20001012, end: 20001012
  5. REMICADE [Suspect]
     Indication: RHEUMATOID ARTHRITIS
     Dosage: 200 MG , 1 IN 1 AS NECESSARY, INTRAVENOUS DRIP
     Route: 041
     Dates: start: 20001128, end: 20001128
  6. REMICADE [Suspect]
     Indication: RHEUMATOID ARTHRITIS
     Dosage: 200 MG , 1 IN 1 AS NECESSARY, INTRAVENOUS DRIP
     Route: 041
     Dates: start: 20010201, end: 20010201
  7. REMICADE [Suspect]
     Indication: RHEUMATOID ARTHRITIS
     Dosage: 200 MG , 1 IN 1 AS NECESSARY, INTRAVENOUS DRIP
     Route: 041
     Dates: start: 20010329, end: 20010329
  8. REMICADE [Suspect]
     Indication: RHEUMATOID ARTHRITIS
     Dosage: 200 MG , 1 IN 1 AS NECESSARY, INTRAVENOUS DRIP
     Route: 041
     Dates: start: 20010613, end: 20010613
  9. REMICADE [Suspect]
     Indication: RHEUMATOID ARTHRITIS
     Dosage: 200 MG , 1 IN 1 AS NECESSARY, INTRAVENOUS DRIP
     Route: 041
     Dates: start: 20010808, end: 20010808
  10. REMICADE [Suspect]
     Indication: RHEUMATOID ARTHRITIS
     Dosage: 200 MG , 1 IN 1 AS NECESSARY, INTRAVENOUS DRIP
     Route: 041
     Dates: start: 20011005, end: 20011005
  11. PREDNISONE [Concomitant]
  12. SYNTHROID [Concomitant]
  13. ZOLOFT [Concomitant]
  14. METHOTREXATE [Concomitant]
  15. FOLIC ACID [Concomitant]
  16. ESTRADIOL [Concomitant]
  17. ACTONEL [Concomitant]
  18. CALCIUM CARBONATE [Concomitant]
  19. ARAVA [Concomitant]
  20. RIDAURA [Concomitant]

REACTIONS (18)
  - ARTHRALGIA [None]
  - BURSITIS [None]
  - CHEST WALL PAIN [None]
  - DRUG INEFFECTIVE [None]
  - DYSFUNCTIONAL UTERINE BLEEDING [None]
  - DYSPHAGIA [None]
  - EYE PAIN [None]
  - HAEMORRHOIDS [None]
  - HEPATIC CYST [None]
  - HEPATIC STEATOSIS [None]
  - HEPATITIS [None]
  - NEURILEMMOMA BENIGN [None]
  - PAROTITIS [None]
  - PHARYNGOLARYNGEAL PAIN [None]
  - PULMONARY TUBERCULOSIS [None]
  - PYREXIA [None]
  - SINUS CONGESTION [None]
  - VAGINAL MYCOSIS [None]
